FAERS Safety Report 25362484 (Version 1)
Quarter: 2025Q2

REPORT INFORMATION
  Report Type: Spontaneous
  Country: CA (occurrence: CA)
  Receive Date: 20250527
  Receipt Date: 20250527
  Transmission Date: 20250717
  Serious: Yes (Hospitalization, Other)
  Sender: STRIDES
  Company Number: CA-STRIDES ARCOLAB LIMITED-2025SP006361

PATIENT
  Age: 17 Year
  Sex: Female

DRUGS (28)
  1. PREDNISOLONE [Suspect]
     Active Substance: PREDNISOLONE
     Indication: Haemophagocytic lymphohistiocytosis
     Route: 048
  2. PREDNISOLONE [Suspect]
     Active Substance: PREDNISOLONE
     Route: 048
  3. PREDNISOLONE [Suspect]
     Active Substance: PREDNISOLONE
     Route: 048
  4. METHYLPREDNISOLONE [Suspect]
     Active Substance: METHYLPREDNISOLONE
     Indication: Haemophagocytic lymphohistiocytosis
     Route: 042
  5. METHYLPREDNISOLONE [Suspect]
     Active Substance: METHYLPREDNISOLONE
     Route: 042
  6. METHYLPREDNISOLONE [Suspect]
     Active Substance: METHYLPREDNISOLONE
     Route: 042
  7. METHYLPREDNISOLONE [Suspect]
     Active Substance: METHYLPREDNISOLONE
     Route: 042
  8. METHYLPREDNISOLONE [Suspect]
     Active Substance: METHYLPREDNISOLONE
     Route: 042
  9. ISONIAZID [Suspect]
     Active Substance: ISONIAZID
     Indication: Disseminated tuberculosis
     Route: 048
  10. ISONIAZID [Suspect]
     Active Substance: ISONIAZID
     Indication: Tuberculosis
     Route: 048
  11. ISONIAZID [Suspect]
     Active Substance: ISONIAZID
  12. RIFAMPIN [Suspect]
     Active Substance: RIFAMPIN
     Indication: Disseminated tuberculosis
     Route: 048
  13. RIFAMPIN [Suspect]
     Active Substance: RIFAMPIN
     Indication: Tuberculosis
     Route: 042
  14. MOXIFLOXACIN [Suspect]
     Active Substance: MOXIFLOXACIN
     Indication: Disseminated tuberculosis
     Route: 048
  15. MOXIFLOXACIN [Suspect]
     Active Substance: MOXIFLOXACIN
     Indication: Tuberculosis
     Route: 042
  16. ETHAMBUTOL [Suspect]
     Active Substance: ETHAMBUTOL HYDROCHLORIDE
     Indication: Disseminated tuberculosis
     Route: 065
  17. ETHAMBUTOL [Suspect]
     Active Substance: ETHAMBUTOL HYDROCHLORIDE
     Indication: Tuberculosis
  18. PYRAZINAMIDE [Suspect]
     Active Substance: PYRAZINAMIDE
     Indication: Disseminated tuberculosis
     Route: 065
  19. PYRAZINAMIDE [Suspect]
     Active Substance: PYRAZINAMIDE
     Indication: Tuberculosis
  20. LINEZOLID [Concomitant]
     Active Substance: LINEZOLID
     Indication: Disseminated tuberculosis
     Route: 042
  21. LINEZOLID [Concomitant]
     Active Substance: LINEZOLID
     Indication: Tuberculosis
  22. AMIKACIN [Concomitant]
     Active Substance: AMIKACIN
     Indication: Disseminated tuberculosis
     Route: 042
  23. AMIKACIN [Concomitant]
     Active Substance: AMIKACIN
     Indication: Tuberculosis
  24. ANAKINRA [Concomitant]
     Active Substance: ANAKINRA
     Indication: Haemophagocytic lymphohistiocytosis
     Route: 065
  25. INFLIXIMAB [Concomitant]
     Active Substance: INFLIXIMAB
     Indication: Colitis ulcerative
     Route: 042
  26. INFLIXIMAB [Concomitant]
     Active Substance: INFLIXIMAB
     Route: 065
  27. INFLIXIMAB [Concomitant]
     Active Substance: INFLIXIMAB
     Route: 065
  28. INFLIXIMAB [Concomitant]
     Active Substance: INFLIXIMAB
     Route: 065

REACTIONS (3)
  - Immune reconstitution inflammatory syndrome [Recovering/Resolving]
  - Condition aggravated [Recovering/Resolving]
  - Off label use [Unknown]
